FAERS Safety Report 18247038 (Version 3)
Quarter: 2020Q4

REPORT INFORMATION
  Report Type: Spontaneous
  Country: US (occurrence: US)
  Receive Date: 20200909
  Receipt Date: 20201026
  Transmission Date: 20210113
  Serious: Yes (Hospitalization, Other)
  Sender: FDA-Public Use
  Company Number: US-SHIRE-US202028783

PATIENT
  Sex: Female

DRUGS (4)
  1. GATTEX [Suspect]
     Active Substance: TEDUGLUTIDE\WATER
     Indication: PRODUCT USED FOR UNKNOWN INDICATION
     Dosage: 0.2300 UNK, UNK
     Route: 065
     Dates: start: 20180322
  2. GATTEX [Suspect]
     Active Substance: TEDUGLUTIDE\WATER
     Indication: PRODUCT USED FOR UNKNOWN INDICATION
     Dosage: 0.2300 UNK, UNK
     Route: 065
     Dates: start: 20180322
  3. GATTEX [Suspect]
     Active Substance: TEDUGLUTIDE\WATER
     Indication: PRODUCT USED FOR UNKNOWN INDICATION
     Dosage: 0.2300 UNK, UNK
     Route: 065
     Dates: start: 20180322
  4. GATTEX [Suspect]
     Active Substance: TEDUGLUTIDE\WATER
     Indication: PRODUCT USED FOR UNKNOWN INDICATION
     Dosage: 0.2300 UNK, UNK
     Route: 065
     Dates: start: 20180322

REACTIONS (5)
  - Syringe issue [Unknown]
  - Product container issue [Unknown]
  - Device related infection [Recovered/Resolved]
  - Product quality issue [Unknown]
  - Product use complaint [Unknown]
